FAERS Safety Report 7620899-5 (Version None)
Quarter: 2011Q3

REPORT INFORMATION
  Report Type: 
  Country: None (occurrence: None)
  Receive Date: 20110719
  Receipt Date: 20110707
  Transmission Date: 20111222
  Serious: Yes (Hospitalization, Other)
  Sender: FDA-Public Use
  Company Number: US-BAYER-201029788NA

PATIENT
  Age: 31 Year
  Sex: Female
  Weight: 114.29 kg

DRUGS (4)
  1. COLACE [Concomitant]
     Dosage: UNK
     Dates: start: 20080801
  2. YASMIN [Suspect]
     Indication: ACNE
  3. ACETAMINOPHEN [Concomitant]
     Dosage: UNK
     Dates: start: 20080801
  4. YASMIN [Suspect]
     Indication: CONTRACEPTION
     Dosage: UNK UNK, UNK
     Route: 048
     Dates: start: 20070701, end: 20080801

REACTIONS (9)
  - CHOLECYSTITIS CHRONIC [None]
  - BILIARY COLIC [None]
  - GALLBLADDER DISORDER [None]
  - DIARRHOEA [None]
  - ABDOMINAL DISTENSION [None]
  - NAUSEA [None]
  - ABDOMINAL PAIN [None]
  - VOMITING [None]
  - CHOLELITHIASIS [None]
